FAERS Safety Report 16455523 (Version 2)
Quarter: 2019Q3

REPORT INFORMATION
  Report Type: Spontaneous
  Country: US (occurrence: US)
  Receive Date: 20190620
  Receipt Date: 20190814
  Transmission Date: 20191004
  Serious: Yes (Other)
  Sender: FDA-Public Use
  Company Number: US-AUROBINDO-AUR-APL-2019-033893

PATIENT

DRUGS (2)
  1. SPIRONOLACTONE. [Suspect]
     Active Substance: SPIRONOLACTONE
     Dosage: 100 MILLIGRAM, ONCE A DAY
     Route: 065
  2. SPIRONOLACTONE. [Suspect]
     Active Substance: SPIRONOLACTONE
     Indication: ALOPECIA
     Dosage: UNK, TWO TIMES A DAY
     Route: 065

REACTIONS (5)
  - Dyspareunia [Recovered/Resolved]
  - Vestibular disorder [Recovered/Resolved]
  - Female sexual arousal disorder [Recovering/Resolving]
  - Vulvovaginal pain [Recovered/Resolved]
  - Mucosal atrophy [Recovered/Resolved]
